FAERS Safety Report 12793758 (Version 1)
Quarter: 2016Q3

REPORT INFORMATION
  Report Type: Spontaneous
  Country: US (occurrence: US)
  Receive Date: 20160929
  Receipt Date: 20160929
  Transmission Date: 20161109
  Serious: No
  Sender: FDA-Public Use
  Company Number: US-JAZZ-2016-US-011745

PATIENT
  Sex: Female
  Weight: 60.77 kg

DRUGS (20)
  1. XYREM [Suspect]
     Active Substance: SODIUM OXYBATE
     Dosage: 2.75 G, FIRST DOSE
     Route: 048
     Dates: start: 2016
  2. XYREM [Suspect]
     Active Substance: SODIUM OXYBATE
     Dosage: 3 G, SECOND DOSE
     Route: 048
     Dates: start: 2016
  3. ZOFRAN [Concomitant]
     Active Substance: ONDANSETRON HYDROCHLORIDE
  4. COENZYME Q10 [Concomitant]
     Active Substance: UBIDECARENONE
  5. FISH OIL [Concomitant]
     Active Substance: FISH OIL
  6. MAXALT [Concomitant]
     Active Substance: RIZATRIPTAN BENZOATE
  7. TROKENDI [Concomitant]
     Active Substance: TOPIRAMATE
  8. DELSYM [Concomitant]
     Active Substance: DEXTROMETHORPHAN
  9. XYREM [Suspect]
     Active Substance: SODIUM OXYBATE
     Indication: NARCOLEPSY
     Dosage: 2.25 G, BID
     Route: 048
     Dates: start: 201601, end: 201601
  10. PROPRANOLOL [Concomitant]
     Active Substance: PROPRANOLOL\PROPRANOLOL HYDROCHLORIDE
  11. CLARITIN [Concomitant]
     Active Substance: LORATADINE
  12. ADVIL [Concomitant]
     Active Substance: IBUPROFEN
  13. NEXIUM [Concomitant]
     Active Substance: ESOMEPRAZOLE MAGNESIUM
  14. XYREM [Suspect]
     Active Substance: SODIUM OXYBATE
     Indication: CATAPLEXY
     Dosage: DOSE ADJUSTMENTS
     Route: 048
     Dates: start: 201601, end: 2016
  15. BOTOX [Concomitant]
     Active Substance: ONABOTULINUMTOXINA
  16. CAMBIA [Concomitant]
     Active Substance: DICLOFENAC POTASSIUM
  17. LOESTRIN NOS [Concomitant]
     Active Substance: ETHINYL ESTRADIOL\NORETHINDRONE ACETATE
  18. MELATONIN [Concomitant]
     Active Substance: MELATONIN
  19. PROVIGIL [Concomitant]
     Active Substance: MODAFINIL
  20. NASONEX [Concomitant]
     Active Substance: MOMETASONE FUROATE

REACTIONS (1)
  - Somnambulism [Unknown]

NARRATIVE: CASE EVENT DATE: 2016
